FAERS Safety Report 4454625-8 (Version None)
Quarter: 2004Q3

REPORT INFORMATION
  Report Type: 
  Country: None (occurrence: None)
  Receive Date: 20040920
  Receipt Date: 20040920
  Transmission Date: 20050211
  Serious: No
  Sender: FDA-Public Use
  Company Number: None

PATIENT
  Age: 55 Year
  Sex: Female
  Weight: 75 kg

DRUGS (2)
  1. RITUXIMAB [Suspect]
     Indication: LYMPHOMA
     Dosage: 690 MG IV
     Route: 042
     Dates: start: 20040714, end: 20040714
  2. METFORMIN [Concomitant]

REACTIONS (1)
  - CHEST DISCOMFORT [None]
